FAERS Safety Report 10653156 (Version 2)
Quarter: 2014Q4

REPORT INFORMATION
  Report Type: Report from Study
  Country: IE (occurrence: IE)
  Receive Date: 20141215
  Receipt Date: 20141224
  Transmission Date: 20150529
  Serious: Yes (Hospitalization, Other)
  Sender: FDA-Public Use
  Company Number: IE-GLAXOSMITHKLINE-IE2014031498

PATIENT
  Age: 40 Year
  Sex: Male
  Weight: 109.9 kg

DRUGS (2)
  1. IMURAN [Concomitant]
     Active Substance: AZATHIOPRINE
     Indication: GRANULOMATOSIS WITH POLYANGIITIS
     Route: 048
     Dates: start: 20141102
  2. BELIMUMAB [Suspect]
     Active Substance: BELIMUMAB
     Indication: VASCULITIS
     Dosage: UNK, CYC
     Route: 042
     Dates: start: 20140617

REACTIONS (1)
  - Respiratory tract infection [Not Recovered/Not Resolved]

NARRATIVE: CASE EVENT DATE: 20141129
